FAERS Safety Report 10298807 (Version 1)
Quarter: 2014Q3

REPORT INFORMATION
  Report Type: Spontaneous
  Country: TR (occurrence: TR)
  Receive Date: 20140711
  Receipt Date: 20140711
  Transmission Date: 20150326
  Serious: Yes (Death, Hospitalization)
  Sender: FDA-Public Use
  Company Number: PHHY2014TR084745

PATIENT
  Age: 55 Year
  Sex: Female

DRUGS (2)
  1. OXCARBAZEPINE. [Suspect]
     Active Substance: OXCARBAZEPINE
     Indication: EPILEPSY
     Dosage: 300 MG, BID
  2. ARTIFICIAL TEARS                   /00880201/ [Concomitant]
     Indication: XEROPHTHALMIA

REACTIONS (12)
  - Vanishing bile duct syndrome [Unknown]
  - Jaundice [Unknown]
  - Blood bilirubin increased [Unknown]
  - Hepatitis toxic [Unknown]
  - Pruritus [Unknown]
  - Histiocytosis haematophagic [Unknown]
  - Bilirubin conjugated increased [Unknown]
  - Alanine aminotransferase increased [Unknown]
  - Septic shock [Fatal]
  - Gamma-glutamyltransferase increased [Unknown]
  - Pyrexia [Unknown]
  - Blood alkaline phosphatase increased [Unknown]
